FAERS Safety Report 16996913 (Version 1)
Quarter: 2019Q4

REPORT INFORMATION
  Report Type: Spontaneous
  Country: US (occurrence: US)
  Receive Date: 20190923
  Receipt Date: 20190923
  Transmission Date: 20200122
  Serious: Yes (Hospitalization)
  Sender: FDA-Public Use
  Company Number: None

PATIENT
  Age: 63 Year
  Sex: Male
  Weight: 109.77 kg

DRUGS (2)
  1. ASPIRIN. [Suspect]
     Active Substance: ASPIRIN
     Indication: CORONARY ARTERY DISEASE
     Route: 048
     Dates: start: 20180301, end: 20190307
  2. SULIDAC [Suspect]
     Active Substance: SULINDAC
     Indication: PAIN
     Dates: start: 20181212, end: 20190507

REACTIONS (8)
  - Gastritis [None]
  - Hunger [None]
  - Nausea [None]
  - Haematemesis [None]
  - Gastric ulcer haemorrhage [None]
  - Peptic ulcer [None]
  - Duodenitis [None]
  - Abdominal discomfort [None]

NARRATIVE: CASE EVENT DATE: 20190507
